FAERS Safety Report 21764922 (Version 1)
Quarter: 2022Q4

REPORT INFORMATION
  Report Type: Other
  Country: IN (occurrence: None)
  Receive Date: 20221222
  Receipt Date: 20221222
  Transmission Date: 20230113
  Serious: Yes (Death)
  Sender: FDA-Public Use
  Company Number: IN-ROCHE-3246500

PATIENT
  Age: 63 Year
  Sex: Female
  Weight: 67.4 kg

DRUGS (2)
  1. TECENTRIQ [Suspect]
     Active Substance: ATEZOLIZUMAB
     Indication: Hepatocellular carcinoma
     Route: 041
     Dates: start: 20220823
  2. AVASTIN [Suspect]
     Active Substance: BEVACIZUMAB
     Indication: Hepatocellular carcinoma
     Route: 042
     Dates: start: 20220824

REACTIONS (2)
  - Drug ineffective [Fatal]
  - Death [Fatal]

NARRATIVE: CASE EVENT DATE: 20221101
